FAERS Safety Report 10908099 (Version 1)
Quarter: 2015Q1

REPORT INFORMATION
  Report Type: Spontaneous
  Country: None (occurrence: None)
  Receive Date: 20150309
  Receipt Date: 20150309
  Transmission Date: 20150721
  Serious: No
  Sender: FDA-Public Use
  Company Number: None

PATIENT
  Age: 37 Year
  Sex: Female
  Weight: 59.88 kg

DRUGS (2)
  1. MUCINEX D [Suspect]
     Active Substance: GUAIFENESIN\PSEUDOEPHEDRINE HYDROCHLORIDE
     Indication: SINUS CONGESTION
     Dosage: 2 TABLETS
     Route: 048
     Dates: start: 20150303, end: 20150305
  2. MUCINEX D [Suspect]
     Active Substance: GUAIFENESIN\PSEUDOEPHEDRINE HYDROCHLORIDE
     Indication: RESPIRATORY TRACT CONGESTION
     Dosage: 2 TABLETS
     Route: 048
     Dates: start: 20150303, end: 20150305

REACTIONS (4)
  - Middle insomnia [None]
  - Somnolence [None]
  - Feeling jittery [None]
  - Insomnia [None]

NARRATIVE: CASE EVENT DATE: 20150304
